FAERS Safety Report 16858384 (Version 2)
Quarter: 2019Q4

REPORT INFORMATION
  Report Type: Spontaneous
  Country: US (occurrence: US)
  Receive Date: 20190926
  Receipt Date: 20191031
  Transmission Date: 20200122
  Serious: Yes (Other)
  Sender: FDA-Public Use
  Company Number: US-BRISTOL-MYERS SQUIBB COMPANY-BMS-2019-093457

PATIENT
  Sex: Male

DRUGS (5)
  1. DAPSONE. [Concomitant]
     Active Substance: DAPSONE
     Indication: CTLA4 DEFICIENCY
     Dosage: 100 MILLIGRAM
     Route: 048
  2. ORENCIA [Suspect]
     Active Substance: ABATACEPT
     Indication: PRODUCT USED FOR UNKNOWN INDICATION
     Dosage: 250 MILLIGRAM, Q2WK
     Route: 058
     Dates: start: 20190719
  3. FLUCONAZOLE. [Concomitant]
     Active Substance: FLUCONAZOLE
     Indication: CTLA4 DEFICIENCY
     Dosage: 200 MILLIGRAM
     Route: 048
  4. AZITHROMYCIN ANHYDROUS. [Concomitant]
     Active Substance: AZITHROMYCIN ANHYDROUS
     Indication: CTLA4 DEFICIENCY
     Dosage: 250 MILLIGRAM
     Route: 048
     Dates: start: 201906
  5. ORENCIA [Suspect]
     Active Substance: ABATACEPT
     Indication: CTLA4 DEFICIENCY
     Dosage: 125 MILLIGRAM, QWK
     Route: 058
     Dates: start: 20190626

REACTIONS (3)
  - Rhinorrhoea [Unknown]
  - Neutropenia [Unknown]
  - Intentional product use issue [Unknown]
